FAERS Safety Report 23135690 (Version 1)
Quarter: 2023Q4

REPORT INFORMATION
  Report Type: Spontaneous
  Country: JP (occurrence: JP)
  Receive Date: 20231101
  Receipt Date: 20231101
  Transmission Date: 20240109
  Serious: Yes (Hospitalization)
  Sender: FDA-Public Use
  Company Number: JP-Eisai Medical Research-EC-2023-146787

PATIENT
  Sex: Female
  Weight: 43.9 kg

DRUGS (7)
  1. LENVIMA [Suspect]
     Active Substance: LENVATINIB
     Indication: Papillary thyroid cancer
     Dosage: 2-WEEKS ON/ONE WEEK OFF SCHEDULE
     Route: 048
     Dates: start: 20210225, end: 20230525
  2. LENVIMA [Suspect]
     Active Substance: LENVATINIB
     Dosage: 2-WEEKS ON/ONE WEEK OFF SCHEDULE
     Route: 048
     Dates: start: 20230627, end: 20230718
  3. LENVIMA [Suspect]
     Active Substance: LENVATINIB
     Dosage: 2-WEEKS ON/ONE WEEK OFF SCHEDULE
     Route: 048
     Dates: start: 20230906
  4. LEVOTHYROXINE [Concomitant]
     Active Substance: LEVOTHYROXINE
     Indication: Product used for unknown indication
     Dosage: FREQUENCY UNKNOWN.
     Route: 065
  5. AMLODIPINE [Concomitant]
     Active Substance: AMLODIPINE BESYLATE
     Indication: Product used for unknown indication
     Dosage: FREQUENCY UNKNOWN.
     Route: 065
  6. PITAVASTATIN CALCIUM [Concomitant]
     Active Substance: PITAVASTATIN CALCIUM
     Indication: Product used for unknown indication
     Dosage: DOSE AND FREQUENCY UNKNOWN.
     Route: 065
  7. OLMESARTAN [Concomitant]
     Active Substance: OLMESARTAN
     Indication: Product used for unknown indication
     Dosage: FREQUENCY UNKNOWN.
     Route: 065

REACTIONS (2)
  - Liver disorder [Recovered/Resolved]
  - Pleural effusion [Recovered/Resolved]

NARRATIVE: CASE EVENT DATE: 20230808
